FAERS Safety Report 9471529 (Version 3)
Quarter: 2013Q4

REPORT INFORMATION
  Report Type: Spontaneous
  Country: GB (occurrence: GB)
  Receive Date: 20130822
  Receipt Date: 20131002
  Transmission Date: 20140711
  Serious: Yes (Other)
  Sender: FDA-Public Use
  Company Number: GB-PFIZER INC-2013237657

PATIENT
  Age: 4 Year
  Sex: Female

DRUGS (1)
  1. GENOTROPIN [Suspect]
     Indication: TURNER^S SYNDROME
     Dosage: UNK
     Route: 058
     Dates: start: 1994, end: 2004

REACTIONS (2)
  - Creutzfeldt-Jakob disease [Unknown]
  - Cognitive disorder [Unknown]
